FAERS Safety Report 4501645-0 (Version None)
Quarter: 2004Q4

REPORT INFORMATION
  Report Type: 
  Country: None (occurrence: None)
  Receive Date: 20041115
  Receipt Date: 20041115
  Transmission Date: 20050328
  Serious: Yes (Life-Threatening, Other)
  Sender: FDA-Public Use
  Company Number: None

PATIENT
  Sex: Female
  Weight: 104.3273 kg

DRUGS (1)
  1. VIOXX [Suspect]
     Dosage: 2 FOR 5 DAYS THEN 1 A DAY [ 1 DOSE ONLY]

REACTIONS (2)
  - CARDIAC DISORDER [None]
  - CHEST DISCOMFORT [None]
